FAERS Safety Report 25033396 (Version 2)
Quarter: 2025Q2

REPORT INFORMATION
  Report Type: Spontaneous
  Country: CA (occurrence: CA)
  Receive Date: 20250303
  Receipt Date: 20250625
  Transmission Date: 20250717
  Serious: Yes (Other)
  Sender: HLS THERAPEUTICS
  Company Number: CA-HLS-202500464

PATIENT
  Age: 62 Year
  Sex: Female
  Weight: 43 kg

DRUGS (65)
  1. ACETAMINOPHEN [Concomitant]
     Active Substance: ACETAMINOPHEN
     Indication: Product used for unknown indication
     Route: 048
  2. BENYLIN DM [Concomitant]
     Active Substance: DEXTROMETHORPHAN HYDROBROMIDE\GUAIFENESIN
     Indication: Antitussive therapy
     Route: 048
  3. BISACODYL [Concomitant]
     Active Substance: BISACODYL
     Indication: Product used for unknown indication
     Route: 065
  4. CLOZAPINE [Suspect]
     Active Substance: CLOZAPINE
     Indication: Product used for unknown indication
     Route: 048
  5. CLOZAPINE [Suspect]
     Active Substance: CLOZAPINE
     Indication: Product used for unknown indication
     Route: 065
  6. DIPHENHYDRAMINE HYDROCHLORIDE [Concomitant]
     Active Substance: DIPHENHYDRAMINE HYDROCHLORIDE
     Indication: Product used for unknown indication
     Route: 048
  7. LACTULOSE [Concomitant]
     Active Substance: LACTULOSE
     Indication: Constipation
     Route: 048
  8. LACTULOSE [Concomitant]
     Active Substance: LACTULOSE
     Indication: Product used for unknown indication
     Route: 048
  9. LACTULOSE [Concomitant]
     Active Substance: LACTULOSE
     Indication: Constipation
     Route: 048
  10. LACTULOSE [Concomitant]
     Active Substance: LACTULOSE
     Indication: Product used for unknown indication
     Route: 048
  11. LACTULOSE [Concomitant]
     Active Substance: LACTULOSE
     Indication: Constipation
     Route: 048
  12. LACTULOSE [Concomitant]
     Active Substance: LACTULOSE
     Indication: Product used for unknown indication
     Route: 048
  13. MIRTAZAPINE [Concomitant]
     Active Substance: MIRTAZAPINE
     Indication: Product used for unknown indication
     Route: 065
  14. OLANZAPINE [Suspect]
     Active Substance: OLANZAPINE
     Indication: Product used for unknown indication
     Route: 048
  15. OLANZAPINE [Suspect]
     Active Substance: OLANZAPINE
     Indication: Product used for unknown indication
     Route: 048
  16. QUETIAPINE FUMARATE [Suspect]
     Active Substance: QUETIAPINE FUMARATE
     Indication: Product used for unknown indication
     Route: 065
  17. RISPERIDONE [Suspect]
     Active Substance: RISPERIDONE
     Indication: Product used for unknown indication
     Route: 065
  18. RISPERIDONE [Suspect]
     Active Substance: RISPERIDONE
     Indication: Product used for unknown indication
     Route: 065
  19. SENNOSIDES [Concomitant]
     Active Substance: SENNOSIDES
     Indication: Constipation
     Route: 048
  20. SENNOSIDES [Concomitant]
     Active Substance: SENNOSIDES
     Indication: Product used for unknown indication
     Route: 048
  21. SENNOSIDES [Concomitant]
     Active Substance: SENNOSIDES
     Indication: Constipation
     Route: 048
  22. SENNOSIDES [Concomitant]
     Active Substance: SENNOSIDES
     Indication: Product used for unknown indication
     Route: 048
  23. VENLAFAXINE HYDROCHLORIDE [Concomitant]
     Active Substance: VENLAFAXINE HYDROCHLORIDE
     Indication: Product used for unknown indication
     Route: 065
  24. LEVOMEFOLIC ACID [Suspect]
     Active Substance: LEVOMEFOLIC ACID
     Indication: Product used for unknown indication
     Route: 048
  25. LEVOMEFOLIC ACID [Suspect]
     Active Substance: LEVOMEFOLIC ACID
     Indication: Product used for unknown indication
     Route: 065
  26. BENFOTIAMINE [Suspect]
     Active Substance: BENFOTIAMINE
     Indication: Antitussive therapy
     Route: 065
  27. BENFOTIAMINE [Suspect]
     Active Substance: BENFOTIAMINE
     Indication: Product used for unknown indication
     Route: 065
  28. BENFOTIAMINE [Suspect]
     Active Substance: BENFOTIAMINE
     Indication: Antitussive therapy
     Route: 048
  29. BENFOTIAMINE [Suspect]
     Active Substance: BENFOTIAMINE
     Indication: Product used for unknown indication
     Route: 048
  30. BENFOTIAMINE [Suspect]
     Active Substance: BENFOTIAMINE
     Indication: Antitussive therapy
     Route: 065
  31. BENFOTIAMINE [Suspect]
     Active Substance: BENFOTIAMINE
     Indication: Product used for unknown indication
     Route: 065
  32. BENFOTIAMINE [Suspect]
     Active Substance: BENFOTIAMINE
     Indication: Antitussive therapy
     Route: 065
  33. BENFOTIAMINE [Suspect]
     Active Substance: BENFOTIAMINE
     Indication: Product used for unknown indication
     Route: 065
  34. BENFOTIAMINE [Suspect]
     Active Substance: BENFOTIAMINE
     Indication: Antitussive therapy
     Route: 048
  35. BENFOTIAMINE [Suspect]
     Active Substance: BENFOTIAMINE
     Indication: Product used for unknown indication
     Route: 048
  36. .ALPHA.-TOCOPHEROL, D- [Suspect]
     Active Substance: .ALPHA.-TOCOPHEROL, D-
     Indication: Product used for unknown indication
     Route: 048
  37. .ALPHA.-TOCOPHEROL, D- [Suspect]
     Active Substance: .ALPHA.-TOCOPHEROL, D-
     Indication: Product used for unknown indication
     Route: 065
  38. KRILL OIL [Suspect]
     Active Substance: DIETARY SUPPLEMENT\KRILL OIL
     Indication: Constipation
     Route: 048
  39. KRILL OIL [Suspect]
     Active Substance: DIETARY SUPPLEMENT\KRILL OIL
     Indication: Product used for unknown indication
     Route: 048
  40. KRILL OIL [Suspect]
     Active Substance: DIETARY SUPPLEMENT\KRILL OIL
     Indication: Constipation
     Route: 048
  41. KRILL OIL [Suspect]
     Active Substance: DIETARY SUPPLEMENT\KRILL OIL
     Indication: Product used for unknown indication
     Route: 048
  42. KRILL OIL [Suspect]
     Active Substance: DIETARY SUPPLEMENT\KRILL OIL
     Indication: Constipation
     Route: 048
  43. KRILL OIL [Suspect]
     Active Substance: DIETARY SUPPLEMENT\KRILL OIL
     Indication: Product used for unknown indication
     Route: 048
  44. KRILL OIL [Suspect]
     Active Substance: DIETARY SUPPLEMENT\KRILL OIL
     Indication: Constipation
     Route: 065
  45. KRILL OIL [Suspect]
     Active Substance: DIETARY SUPPLEMENT\KRILL OIL
     Indication: Product used for unknown indication
     Route: 065
  46. METHYLCOBALAMIN [Suspect]
     Active Substance: METHYLCOBALAMIN
     Indication: Product used for unknown indication
     Route: 065
  47. METHYLCOBALAMIN [Suspect]
     Active Substance: METHYLCOBALAMIN
     Indication: Product used for unknown indication
     Route: 065
  48. NICOTINAMIDE [Suspect]
     Active Substance: NIACINAMIDE
     Indication: Product used for unknown indication
     Route: 048
  49. NICOTINAMIDE [Suspect]
     Active Substance: NIACINAMIDE
     Indication: Product used for unknown indication
     Route: 048
  50. NICOTINAMIDE [Suspect]
     Active Substance: NIACINAMIDE
     Indication: Product used for unknown indication
     Route: 065
  51. PANTOTHENIC ACID [Suspect]
     Active Substance: PANTOTHENIC ACID
     Indication: Product used for unknown indication
     Route: 065
  52. PYRIDOXINE [Suspect]
     Active Substance: PYRIDOXINE
     Indication: Product used for unknown indication
     Route: 065
  53. PYRIDOXINE [Suspect]
     Active Substance: PYRIDOXINE
     Indication: Product used for unknown indication
     Route: 065
  54. RIBOFLAVIN [Suspect]
     Active Substance: RIBOFLAVIN
     Indication: Constipation
     Route: 065
  55. RIBOFLAVIN [Suspect]
     Active Substance: RIBOFLAVIN
     Indication: Product used for unknown indication
     Route: 065
  56. RIBOFLAVIN [Suspect]
     Active Substance: RIBOFLAVIN
     Indication: Constipation
     Route: 048
  57. RIBOFLAVIN [Suspect]
     Active Substance: RIBOFLAVIN
     Indication: Product used for unknown indication
     Route: 048
  58. RIBOFLAVIN [Suspect]
     Active Substance: RIBOFLAVIN
     Indication: Constipation
     Route: 048
  59. RIBOFLAVIN [Suspect]
     Active Substance: RIBOFLAVIN
     Indication: Product used for unknown indication
     Route: 048
  60. RIBOFLAVIN [Suspect]
     Active Substance: RIBOFLAVIN
     Indication: Constipation
     Route: 065
  61. RIBOFLAVIN [Suspect]
     Active Substance: RIBOFLAVIN
     Indication: Product used for unknown indication
     Route: 065
  62. RIBOFLAVIN [Suspect]
     Active Substance: RIBOFLAVIN
     Indication: Constipation
     Route: 065
  63. RIBOFLAVIN [Suspect]
     Active Substance: RIBOFLAVIN
     Indication: Product used for unknown indication
     Route: 065
  64. SERINE [Suspect]
     Active Substance: SERINE
     Indication: Product used for unknown indication
     Route: 065
  65. SERINE [Suspect]
     Active Substance: SERINE
     Indication: Product used for unknown indication
     Route: 065

REACTIONS (3)
  - Drug resistance [Recovered/Resolved]
  - Neutropenia [Recovered/Resolved]
  - Oropharyngeal pain [Recovered/Resolved]
